FAERS Safety Report 13782366 (Version 1)
Quarter: 2017Q3

REPORT INFORMATION
  Report Type: Spontaneous
  Country: JP (occurrence: JP)
  Receive Date: 20170724
  Receipt Date: 20170724
  Transmission Date: 20171127
  Serious: Yes (Other)
  Sender: FDA-Public Use
  Company Number: JP-PFIZER INC-2017314131

PATIENT
  Age: 35 Year
  Sex: Male

DRUGS (1)
  1. LYRICA [Suspect]
     Active Substance: PREGABALIN
     Indication: INTERCOSTAL NEURALGIA
     Dosage: 75 MG, 2X/DAY IN THE MORNING AND EVENING
     Route: 048

REACTIONS (3)
  - Muscle rigidity [Recovering/Resolving]
  - Condition aggravated [Recovering/Resolving]
  - Diplegia [Recovering/Resolving]
